FAERS Safety Report 5784282-X (Version None)
Quarter: 2008Q2

REPORT INFORMATION
  Report Type: 
  Country: None (occurrence: None)
  Receive Date: 20080620
  Receipt Date: 20080620
  Transmission Date: 20081010
  Serious: No
  Sender: FDA-Public Use
  Company Number: None

PATIENT
  Age: 66 Year
  Sex: Male
  Weight: 70 kg

DRUGS (2)
  1. ENOXAPARIN SODIUM [Suspect]
     Indication: CORONARY ARTERY DISEASE
     Dosage: 60MG ONE DOSE SQ
     Dates: start: 20080521, end: 20080522
  2. HEPARIN [Suspect]
     Dosage: 2800 UNITS ONE IV BOLUS
     Route: 040

REACTIONS (1)
  - HEPARIN-INDUCED THROMBOCYTOPENIA [None]
